FAERS Safety Report 16903909 (Version 1)
Quarter: 2019Q4

REPORT INFORMATION
  Report Type: Spontaneous
  Country: CZ (occurrence: CZ)
  Receive Date: 20191010
  Receipt Date: 20191010
  Transmission Date: 20200122
  Serious: Yes (Life-Threatening, Other)
  Sender: FDA-Public Use
  Company Number: CZ-BRISTOL-MYERS SQUIBB COMPANY-BMS-2019-094718

PATIENT
  Age: 79 Year
  Sex: Female
  Weight: 58 kg

DRUGS (5)
  1. DIGOXIN. [Concomitant]
     Active Substance: DIGOXIN
     Indication: ATRIAL FIBRILLATION
     Dosage: 0.13 MILLIGRAM, QD
     Route: 048
     Dates: start: 20151111, end: 20190826
  2. FURON [FUROSEMIDE] [Concomitant]
     Indication: CARDIAC FAILURE CHRONIC
     Dosage: 20 MILLIGRAM, QD
     Route: 048
     Dates: start: 2015, end: 20190826
  3. WARFARIN SODIUM. [Suspect]
     Active Substance: WARFARIN SODIUM
     Indication: ANTICOAGULANT THERAPY
     Dosage: UNK
     Route: 048
     Dates: start: 20060317, end: 20190822
  4. VEROSPIRON [Concomitant]
     Active Substance: SPIRONOLACTONE
     Indication: CARDIAC FAILURE CHRONIC
     Dosage: 25 MILLIGRAM, QD
     Route: 048
     Dates: start: 2006, end: 20190826
  5. WARFARIN ORION [Suspect]
     Active Substance: WARFARIN
     Indication: ANTICOAGULANT THERAPY
     Dosage: 3 MILLIGRAM
     Route: 048
     Dates: start: 20190819, end: 20190822

REACTIONS (4)
  - Product quality issue [Unknown]
  - Product complaint [Unknown]
  - Overdose [Recovering/Resolving]
  - Suspected product quality issue [Unknown]

NARRATIVE: CASE EVENT DATE: 20190822
